FAERS Safety Report 25074584 (Version 1)
Quarter: 2025Q1

REPORT INFORMATION
  Report Type: Spontaneous
  Country: US (occurrence: US)
  Receive Date: 20250313
  Receipt Date: 20250313
  Transmission Date: 20250409
  Serious: Yes (Death, Other)
  Sender: AMGEN
  Company Number: US-AMGEN-USASP2025046782

PATIENT

DRUGS (5)
  1. PREDNISONE [Suspect]
     Active Substance: PREDNISONE
     Indication: Immune-mediated adverse reaction
     Dosage: UNK (MILLIGRAM), QD
     Route: 065
  2. SITRAVATINIB [Suspect]
     Active Substance: SITRAVATINIB
     Indication: Clear cell renal cell carcinoma
     Dosage: UNK (MILLIGRAM), QD
     Route: 065
  3. NIVOLUMAB [Suspect]
     Active Substance: NIVOLUMAB
     Indication: Clear cell renal cell carcinoma
     Dosage: UNK (MILLIGRAM/KILOGRAM), Q3WK
     Route: 065
  4. IPILIMUMAB [Suspect]
     Active Substance: IPILIMUMAB
     Indication: Clear cell renal cell carcinoma
     Dosage: UNK (MILLIGRAM/KILOGRAM), Q3WK
     Route: 065
  5. ATOVAQUONE [Suspect]
     Active Substance: ATOVAQUONE
     Indication: Prophylaxis
     Route: 065

REACTIONS (3)
  - Hepatic failure [Fatal]
  - Hepatitis acute [Fatal]
  - Clear cell renal cell carcinoma [Unknown]
